FAERS Safety Report 11427256 (Version 1)
Quarter: 2015Q3

REPORT INFORMATION
  Report Type: Spontaneous
  Country: US (occurrence: US)
  Receive Date: 20150827
  Receipt Date: 20150827
  Transmission Date: 20151125
  Serious: No
  Sender: FDA-Public Use
  Company Number: US-SA-2014SA125119

PATIENT
  Age: 41 Year
  Sex: Male

DRUGS (7)
  1. PREDNISONE. [Concomitant]
     Active Substance: PREDNISONE
     Indication: PREMEDICATION
     Dosage: PREDNISONE 50 MG ORAL NIGHT BEFORE 8 PM AND ANOTHER AT 9 AM
     Route: 048
     Dates: start: 2007
  2. FABRAZYME [Suspect]
     Active Substance: AGALSIDASE BETA
     Indication: FABRY^S DISEASE
     Route: 041
  3. PEPCID [Concomitant]
     Active Substance: FAMOTIDINE
     Indication: PREMEDICATION
     Dosage: 15 MINUTES BEFOR INFUSION
     Route: 048
     Dates: start: 2007
  4. IBUPROFEN. [Concomitant]
     Active Substance: IBUPROFEN
     Indication: PREMEDICATION
     Dosage: 15 MINUTES BEFORE INFUSION
     Route: 048
     Dates: start: 2007
  5. BENADRYL [Concomitant]
     Active Substance: DIPHENHYDRAMINE HYDROCHLORIDE
     Indication: PREMEDICATION
     Dosage: JUST BEFORE INFUSION STARTED
     Route: 042
     Dates: start: 2007
  6. FABRAZYME [Suspect]
     Active Substance: AGALSIDASE BETA
     Indication: LIPIDOSIS
     Route: 041
  7. DEMEROL [Concomitant]
     Active Substance: MEPERIDINE HYDROCHLORIDE
     Indication: PREMEDICATION
     Dosage: JUST BEFORE INFUSION STARTED
     Route: 042
     Dates: start: 20140908

REACTIONS (3)
  - Muscle tightness [Recovered/Resolved]
  - Chills [Recovered/Resolved]
  - Nausea [Recovered/Resolved]

NARRATIVE: CASE EVENT DATE: 20140908
